FAERS Safety Report 9099700 (Version 3)
Quarter: 2013Q4

REPORT INFORMATION
  Report Type: Spontaneous
  Country: US (occurrence: US)
  Receive Date: 20130214
  Receipt Date: 20131112
  Transmission Date: 20140711
  Serious: No
  Sender: FDA-Public Use
  Company Number: US-VERTEX PHARMACEUTICALS INC.-2013-001942

PATIENT
  Age: 63 Year
  Sex: Male
  Weight: 61.22 kg

DRUGS (4)
  1. INCIVEK [Suspect]
     Indication: HEPATITIS C
     Dosage: 750 MG, TID
     Route: 048
     Dates: start: 201212
  2. RIBASPHERE [Suspect]
     Indication: HEPATITIS C
     Dosage: 200 MG, TID
     Dates: start: 201212
  3. RIBASPHERE [Suspect]
     Dosage: 400 MG, QD
  4. PEGINTRON [Suspect]
     Indication: HEPATITIS C
     Dosage: 180 ?G, QW
     Route: 058
     Dates: start: 201212

REACTIONS (12)
  - Headache [Not Recovered/Not Resolved]
  - Abdominal distension [Not Recovered/Not Resolved]
  - Eye disorder [Not Recovered/Not Resolved]
  - Secretion discharge [Unknown]
  - Pneumonia [Unknown]
  - Palpitations [Unknown]
  - Dyspnoea exertional [Unknown]
  - Fatigue [Not Recovered/Not Resolved]
  - Rash generalised [Not Recovered/Not Resolved]
  - Pruritus [Unknown]
  - Anaemia [Unknown]
  - Haemoglobin decreased [Unknown]
